FAERS Safety Report 7901563-1 (Version None)
Quarter: 2011Q4

REPORT INFORMATION
  Report Type: 
  Country: None (occurrence: None)
  Receive Date: 20111108
  Receipt Date: 20111026
  Transmission Date: 20120403
  Serious: Yes (Other)
  Sender: FDA-Public Use
  Company Number: CA-JNJFOC-20111102140

PATIENT
  Sex: Female
  Weight: 68 kg

DRUGS (2)
  1. REMICADE [Suspect]
     Indication: CROHN'S DISEASE
     Route: 042
     Dates: start: 20111026
  2. REMICADE [Suspect]
     Route: 042

REACTIONS (3)
  - OXYGEN SATURATION DECREASED [None]
  - INFUSION RELATED REACTION [None]
  - DYSPNOEA [None]
